FAERS Safety Report 7612345-2 (Version None)
Quarter: 2011Q3

REPORT INFORMATION
  Report Type: 
  Country: None (occurrence: None)
  Receive Date: 20110715
  Receipt Date: 20110704
  Transmission Date: 20111222
  Serious: Yes (Other)
  Sender: FDA-Public Use
  Company Number: GR-AMGEN-GRCSP2011029832

PATIENT
  Age: 28 Year
  Sex: Female

DRUGS (2)
  1. PROLIA [Suspect]
     Indication: OSTEOPOROSIS
     Dosage: UNK
  2. PROLIA [Suspect]
     Indication: OSTEOGENESIS IMPERFECTA

REACTIONS (1)
  - ALOPECIA [None]
